FAERS Safety Report 17286209 (Version 1)
Quarter: 2020Q1

REPORT INFORMATION
  Report Type: Spontaneous
  Country: PL (occurrence: PL)
  Receive Date: 20200118
  Receipt Date: 20200118
  Transmission Date: 20200409
  Serious: Yes (Hospitalization)
  Sender: FDA-Public Use
  Company Number: PL-MICRO LABS LIMITED-ML2020-00193

PATIENT
  Age: 25 Year
  Sex: Male

DRUGS (6)
  1. FLUCONAZOLE. [Suspect]
     Active Substance: FLUCONAZOLE
     Indication: TINEA BARBAE
  2. TERBINAFINE. [Suspect]
     Active Substance: TERBINAFINE
     Indication: TINEA BARBAE
     Dosage: DAILY
  3. VANCOMYCIN [Suspect]
     Active Substance: VANCOMYCIN
     Indication: TINEA BARBAE
  4. CEFTRIAXONE. [Suspect]
     Active Substance: CEFTRIAXONE
     Indication: TINEA BARBAE
     Dosage: DAILY
     Route: 042
  5. AMOXICILLIN/CLAVULANIC ACID [Suspect]
     Active Substance: AMOXICILLIN\CLAVULANIC ACID
     Indication: TINEA BARBAE
  6. KETOCONAZOLE. [Suspect]
     Active Substance: KETOCONAZOLE
     Indication: TINEA BARBAE

REACTIONS (3)
  - Dermatitis [Recovering/Resolving]
  - Arthritis [Recovering/Resolving]
  - Abdominal pain [Recovering/Resolving]
